FAERS Safety Report 7125038-5 (Version None)
Quarter: 2010Q4

REPORT INFORMATION
  Report Type: 
  Country: None (occurrence: None)
  Receive Date: 20101129
  Receipt Date: 20101117
  Transmission Date: 20110411
  Serious: Yes (Other)
  Sender: FDA-Public Use
  Company Number: US-SANOFI-AVENTIS-2010SA069792

PATIENT
  Age: 77 Year
  Sex: Male

DRUGS (4)
  1. OXALIPLATIN [Suspect]
     Indication: COLORECTAL CANCER
  2. FLUOROURACIL [Suspect]
     Indication: COLORECTAL CANCER
  3. AVASTIN [Suspect]
     Indication: COLORECTAL CANCER
     Route: 042
     Dates: start: 20100801
  4. FOLINIC ACID [Suspect]
     Indication: COLORECTAL CANCER

REACTIONS (1)
  - LESION EXCISION [None]
